FAERS Safety Report 7352215-0 (Version None)
Quarter: 2011Q1

REPORT INFORMATION
  Report Type: 
  Country: None (occurrence: None)
  Receive Date: 20110304
  Receipt Date: 20110220
  Transmission Date: 20110831
  Serious: Yes (Other)
  Sender: FDA-Public Use
  Company Number: 1000019043

PATIENT
  Age: 16 Year
  Sex: Male

DRUGS (2)
  1. CODEIN (CODEIN PHOSPHATE) (DROPS (FOR ORAL USE)) [Suspect]
     Dosage: (240 MG,ONCE), ORAL
     Route: 048
     Dates: start: 20110220, end: 20110220
  2. ESCITALOPRAM (ESCITALOPRAM OXALATE) (10 MILLIGRAM, TABLETS) [Suspect]
     Dosage: (100 MG, ONCE), ORAL
     Route: 048
     Dates: start: 20110220, end: 20110220

REACTIONS (3)
  - SUICIDE ATTEMPT [None]
  - MULTIPLE DRUG OVERDOSE INTENTIONAL [None]
  - SOPOR [None]
